FAERS Safety Report 21283487 (Version 3)
Quarter: 2023Q1

REPORT INFORMATION
  Report Type: Spontaneous
  Country: US (occurrence: US)
  Receive Date: 20220901
  Receipt Date: 20230330
  Transmission Date: 20230417
  Serious: Yes (Death, Hospitalization, Other)
  Sender: FDA-Public Use
  Company Number: US-REGENERON PHARMACEUTICALS, INC.-2022-114414

PATIENT
  Sex: Male

DRUGS (1)
  1. LIBTAYO [Suspect]
     Active Substance: CEMIPLIMAB-RWLC
     Indication: Squamous cell carcinoma of skin
     Dosage: UNK, Q3W
     Route: 042
     Dates: start: 20220224, end: 20220311

REACTIONS (10)
  - Cardiac arrest [Fatal]
  - Cardiogenic shock [Fatal]
  - Respiratory failure [Fatal]
  - Myasthenic syndrome [Fatal]
  - Myasthenia gravis [Fatal]
  - Diplopia [Unknown]
  - Dysphagia [Unknown]
  - Gait disturbance [Unknown]
  - Blindness [Unknown]
  - Dyspnoea [Unknown]

NARRATIVE: CASE EVENT DATE: 20220316
